FAERS Safety Report 5964488-7 (Version None)
Quarter: 2008Q4

REPORT INFORMATION
  Report Type: 
  Country: None (occurrence: None)
  Receive Date: 20081122
  Receipt Date: 20081122
  Transmission Date: 20090506
  Serious: Yes (Life-Threatening, Hospitalization, Disabling, Other)
  Sender: FDA-Public Use
  Company Number: None

PATIENT
  Age: 69 Year
  Sex: Female
  Weight: 83.9154 kg

DRUGS (2)
  1. PACERONE [Suspect]
     Indication: CARDIAC FIBRILLATION
     Dosage: 200 MG 1 DAILY
     Dates: start: 19040101, end: 19080101
  2. UNKNOWN [Suspect]

REACTIONS (16)
  - BLISTER [None]
  - DIZZINESS [None]
  - DYSKINESIA [None]
  - EYE DISORDER [None]
  - FATIGUE [None]
  - FLUSHING [None]
  - GOITRE [None]
  - HAEMATEMESIS [None]
  - HYPERHIDROSIS [None]
  - LUNG DISORDER [None]
  - NAUSEA [None]
  - PAIN [None]
  - RESPIRATORY DISORDER [None]
  - SCAR [None]
  - THYROID DISORDER [None]
  - TREMOR [None]
